FAERS Safety Report 19986391 (Version 2)
Quarter: 2022Q2

REPORT INFORMATION
  Report Type: Spontaneous
  Country: CA (occurrence: CA)
  Receive Date: 20211022
  Receipt Date: 20220406
  Transmission Date: 20220721
  Serious: Yes (Death, Hospitalization, Other)
  Sender: FDA-Public Use
  Company Number: CA-SAMSUNG BIOEPIS-SB-2021-24956

PATIENT
  Age: 57 Year
  Sex: Female
  Weight: 54 kg

DRUGS (4)
  1. INFLIXIMAB [Suspect]
     Active Substance: INFLIXIMAB
     Indication: Crohn^s disease
     Route: 042
  2. OLANZAPINE [Concomitant]
     Active Substance: OLANZAPINE
     Indication: Product used for unknown indication
     Route: 065
  3. PANTOPRAZOLE [Concomitant]
     Active Substance: PANTOPRAZOLE
     Indication: Product used for unknown indication
     Route: 065
  4. PAROXETINE [Concomitant]
     Active Substance: PAROXETINE
     Indication: Product used for unknown indication
     Route: 065

REACTIONS (9)
  - Death [Fatal]
  - Condition aggravated [Fatal]
  - Weight decreased [Fatal]
  - Arthralgia [Fatal]
  - Crohn^s disease [Fatal]
  - Haemoglobin decreased [Fatal]
  - Drug level decreased [Fatal]
  - Inappropriate schedule of product administration [Fatal]
  - Off label use [Fatal]
